FAERS Safety Report 14580572 (Version 1)
Quarter: 2018Q1

REPORT INFORMATION
  Report Type: Spontaneous
  Country: US (occurrence: US)
  Receive Date: 20180228
  Receipt Date: 20180228
  Transmission Date: 20180509
  Serious: No
  Sender: FDA-Public Use
  Company Number: US-INSYS THERAPEUTICS, INC-INS201707-000436

PATIENT
  Sex: Female

DRUGS (1)
  1. SUBSYS [Suspect]
     Active Substance: FENTANYL
     Indication: ANALGESIC THERAPY
     Route: 060

REACTIONS (3)
  - Diarrhoea [Unknown]
  - Nausea [Unknown]
  - Feeling abnormal [Unknown]
